FAERS Safety Report 9618399 (Version 9)
Quarter: 2015Q1

REPORT INFORMATION
  Report Type: Spontaneous
  Country: US (occurrence: US)
  Receive Date: 20131014
  Receipt Date: 20150225
  Transmission Date: 20150721
  Serious: Yes (Hospitalization, Other)
  Sender: FDA-Public Use
  Company Number: US-009507513-1310USA005382

PATIENT
  Sex: Female

DRUGS (3)
  1. PROVENTIL [Suspect]
     Active Substance: ALBUTEROL
     Indication: CHRONIC OBSTRUCTIVE PULMONARY DISEASE
     Dosage: HFA-CFC FREE INHALER
     Route: 055
  2. VENTOLIN [Suspect]
     Active Substance: ALBUTEROL SULFATE
     Indication: PRODUCT USED FOR UNKNOWN INDICATION
     Dosage: INHALED
     Route: 055
  3. ADVAIR HFA [Suspect]
     Active Substance: FLUTICASONE PROPIONATE\SALMETEROL XINAFOATE
     Indication: CHRONIC OBSTRUCTIVE PULMONARY DISEASE
     Dosage: INHALED
     Route: 055

REACTIONS (25)
  - Dyspnoea exertional [Unknown]
  - Chronic obstructive pulmonary disease [Not Recovered/Not Resolved]
  - Feeling abnormal [Unknown]
  - Streptococcal bacteraemia [Unknown]
  - Depression [Unknown]
  - Panic attack [Unknown]
  - Delirium febrile [Unknown]
  - Malaise [Unknown]
  - Cardiac disorder [Unknown]
  - Vulvovaginitis streptococcal [Unknown]
  - Precancerous cells present [Unknown]
  - Emphysema [Not Recovered/Not Resolved]
  - Blood pressure decreased [Unknown]
  - Pyrexia [Unknown]
  - Impaired driving ability [Unknown]
  - Emphysema [Unknown]
  - Malaise [Unknown]
  - Dyspnoea [Unknown]
  - Pneumonia [Unknown]
  - Pulmonary mass [Unknown]
  - Neoplasm malignant [Unknown]
  - Fear [Not Recovered/Not Resolved]
  - Infection [Unknown]
  - Pulmonary fibrosis [Unknown]
  - Drug ineffective [Unknown]

NARRATIVE: CASE EVENT DATE: 201312
